FAERS Safety Report 7178829-9 (Version None)
Quarter: 2010Q4

REPORT INFORMATION
  Report Type: 
  Country: None (occurrence: None)
  Receive Date: 20101221
  Receipt Date: 20101207
  Transmission Date: 20110411
  Serious: Yes (Other)
  Sender: FDA-Public Use
  Company Number: US-JNJFOC-20101206324

PATIENT
  Sex: Female

DRUGS (7)
  1. DOXORUBICIN HCL [Suspect]
     Indication: BREAST CANCER METASTATIC
     Dosage: DAY 1 OF EACH CYCLE
     Route: 042
  2. VINORELBINE [Suspect]
     Indication: BREAST CANCER METASTATIC
     Dosage: DAYS 1 AND 2 EVERY 28 DAYS
     Route: 042
  3. DEXAMETHASONE [Suspect]
     Indication: PREMEDICATION
     Dosage: PRIOR TO DOXORUBICIN HYDROCHLORIDE
     Route: 042
  4. HEPARIN [Suspect]
     Indication: PREMEDICATION
     Dosage: PRIOR TO VINORELBINE
     Route: 042
  5. FILGRASTIM [Suspect]
     Indication: PRODUCT USED FOR UNKNOWN INDICATION
     Route: 065
  6. PEGFILGRASTIM [Suspect]
     Indication: PRODUCT USED FOR UNKNOWN INDICATION
     Route: 065
  7. SARGRAMOSTIM [Suspect]
     Indication: PRODUCT USED FOR UNKNOWN INDICATION
     Route: 065

REACTIONS (1)
  - TACHYARRHYTHMIA [None]
